FAERS Safety Report 12610500 (Version 1)
Quarter: 2016Q3

REPORT INFORMATION
  Report Type: Spontaneous
  Country: US (occurrence: US)
  Receive Date: 20160801
  Receipt Date: 20160801
  Transmission Date: 20161109
  Serious: No
  Sender: FDA-Public Use
  Company Number: US-009507513-1607USA005694

PATIENT
  Sex: Male

DRUGS (7)
  1. ZEPATIER [Suspect]
     Active Substance: ELBASVIR\GRAZOPREVIR
     Indication: HEPATITIS C
     Dosage: UNK, QD
     Route: 048
     Dates: start: 20160627
  2. ATORVASTATIN [Concomitant]
     Active Substance: ATORVASTATIN
  3. FARXIGA [Concomitant]
     Active Substance: DAPAGLIFLOZIN PROPANEDIOL
  4. PIOGLITAZONE. [Concomitant]
     Active Substance: PIOGLITAZONE
  5. LISINOPRIL. [Concomitant]
     Active Substance: LISINOPRIL
  6. METFORMIN [Concomitant]
     Active Substance: METFORMIN HYDROCHLORIDE
  7. TERBINAFINE. [Concomitant]
     Active Substance: TERBINAFINE

REACTIONS (1)
  - Headache [Recovering/Resolving]
